FAERS Safety Report 5211882-8 (Version None)
Quarter: 2007Q1

REPORT INFORMATION
  Report Type: 
  Country: None (occurrence: None)
  Receive Date: 20070111
  Receipt Date: 20061227
  Transmission Date: 20070707
  Serious: Yes (Disabling)
  Sender: FDA-Public Use
  Company Number: TGR 2006-0058

PATIENT
  Age: 52 Year
  Sex: Female

DRUGS (4)
  1. FARESTON [Suspect]
     Indication: BREAST CANCER
     Dosage: 120 MG ORAL
     Route: 048
     Dates: start: 20051115, end: 20061206
  2. EPIRUBICIN HYDROCHLORIDE [Concomitant]
  3. CYCLOPMOSPHAMIDE [Concomitant]
  4. UFT [Concomitant]

REACTIONS (1)
  - RENAL IMPAIRMENT [None]
